FAERS Safety Report 4589755-3 (Version None)
Quarter: 2005Q1

REPORT INFORMATION
  Report Type: 
  Country: None (occurrence: None)
  Receive Date: 20050217
  Receipt Date: 20050210
  Transmission Date: 20050727
  Serious: Yes (Other)
  Sender: FDA-Public Use
  Company Number: 2005027709

PATIENT
  Age: 45 Year
  Sex: Male

DRUGS (5)
  1. LIPITOR [Suspect]
     Indication: ILL-DEFINED DISORDER
     Dosage: 10 MG (10 MG, 1 IN 1 D), ORAL
     Route: 048
     Dates: end: 20050101
  2. ARTHROTEC [Suspect]
     Indication: ILL-DEFINED DISORDER
     Dosage: 100 MG (50 MG, 2 IN 1 D), ORAL
     Route: 048
     Dates: start: 20040107
  3. FORMOTEROL (FORMOTEROL) [Suspect]
     Indication: ILL-DEFINED DISORDER
     Dosage: (12 MCG, PRN), INTRA-TRACHEAL
     Route: 039
  4. SYMBICORT TUBUHALER ^DRACO^ (BUDESONIDE, FORMOTEROL FUMARATE) [Suspect]
     Indication: ILL-DEFINED DISORDER
     Dosage: 800/24MCG 2 IN 1 D), INTRA-TRACHEAL
     Route: 039
  5. BECLOMETHASONE DIPROPIONATE [Suspect]
     Indication: ILL-DEFINED DISORDER
     Dosage: 800 MCG (400 MG MCG, 2 IN 1 D), INTRA-TRACHEAL
     Route: 039

REACTIONS (5)
  - ARTHRALGIA [None]
  - COGNITIVE DETERIORATION [None]
  - FATIGUE [None]
  - MEMORY IMPAIRMENT [None]
  - VISUAL DISTURBANCE [None]
